FAERS Safety Report 9820120 (Version 1)
Quarter: 2013Q4

REPORT INFORMATION
  Report Type: Spontaneous
  Country: GB (occurrence: None)
  Receive Date: 20131017
  Receipt Date: 20131017
  Transmission Date: 20140711
  Serious: Yes (Other)
  Sender: FDA-Public Use
  Company Number: 2013GMK005138

PATIENT
  Age: 5 Year
  Sex: Male

DRUGS (1)
  1. GABAPENTIN (GABAPENTIN) UNKNOWN [Suspect]
     Indication: NEURALGIA
     Route: 048
     Dates: end: 20130213

REACTIONS (1)
  - Anger [None]
